FAERS Safety Report 7700596-8 (Version None)
Quarter: 2011Q3

REPORT INFORMATION
  Report Type: 
  Country: None (occurrence: None)
  Receive Date: 20110822
  Receipt Date: 20110818
  Transmission Date: 20111222
  Serious: Yes (Other)
  Sender: FDA-Public Use
  Company Number: US-PFIZER INC-2011191630

PATIENT
  Sex: Male
  Weight: 81.179 kg

DRUGS (1)
  1. CHANTIX [Suspect]
     Indication: SMOKING CESSATION THERAPY
     Dosage: 0.5 MG, 1X/DAY
     Route: 048
     Dates: start: 20110806, end: 20110810

REACTIONS (7)
  - PHARYNGEAL OEDEMA [None]
  - RASH [None]
  - APHAGIA [None]
  - LIP SWELLING [None]
  - SKIN DISCOLOURATION [None]
  - PRURITUS [None]
  - DYSPNOEA [None]
